FAERS Safety Report 12687788 (Version 1)
Quarter: 2016Q3

REPORT INFORMATION
  Report Type: Spontaneous
  Country: IR (occurrence: IR)
  Receive Date: 20160826
  Receipt Date: 20160826
  Transmission Date: 20161109
  Serious: Yes (Other)
  Sender: FDA-Public Use
  Company Number: IR-ACCORD-043385

PATIENT
  Age: 32 Year
  Sex: Female

DRUGS (4)
  1. ETOPOSIDE. [Suspect]
     Active Substance: ETOPOSIDE
     Indication: CHORIOCARCINOMA
     Dosage: RECEIVED 04 COURCES OF EMA-CO REGIMEN
  2. DACTINOMYCIN [Suspect]
     Active Substance: DACTINOMYCIN
     Indication: CHORIOCARCINOMA
     Dosage: RECEIVED 04 COURCES OF EMA-CO REGIMEN
  3. METHOTREXATE. [Suspect]
     Active Substance: METHOTREXATE
     Indication: CHORIOCARCINOMA
     Dosage: RECEIVED 04 COURCES OF EMA-CO REGIMEN
  4. CYCLOPHOSPHAMIDE/CYCLOPHOSPHAMIDE MONOHYDRATE [Suspect]
     Active Substance: CYCLOPHOSPHAMIDE
     Indication: CHORIOCARCINOMA
     Dosage: RECEIVED 04 COURCES OF EMA-CO REGIMEN

REACTIONS (2)
  - Embolism venous [Unknown]
  - Decubitus ulcer [Unknown]
